FAERS Safety Report 12237846 (Version 3)
Quarter: 2016Q3

REPORT INFORMATION
  Report Type: Spontaneous
  Country: DE (occurrence: DE)
  Receive Date: 20160405
  Receipt Date: 20160831
  Transmission Date: 20161109
  Serious: Yes (Hospitalization)
  Sender: FDA-Public Use
  Company Number: DE-SA-2016SA059245

PATIENT
  Age: 25 Year
  Sex: Female

DRUGS (1)
  1. ALEMTUZUMAB [Suspect]
     Active Substance: ALEMTUZUMAB
     Indication: RELAPSING-REMITTING MULTIPLE SCLEROSIS
     Route: 041
     Dates: start: 20140407, end: 20140411

REACTIONS (7)
  - Malaise [Recovered/Resolved]
  - Uhthoff^s phenomenon [Recovered/Resolved]
  - Chills [Recovered/Resolved]
  - Affective disorder [Recovering/Resolving]
  - Depression [Unknown]
  - Pyrexia [Recovered/Resolved]
  - Mania [Unknown]

NARRATIVE: CASE EVENT DATE: 2014
